FAERS Safety Report 18891718 (Version 3)
Quarter: 2021Q1

REPORT INFORMATION
  Report Type: Spontaneous
  Country: JP (occurrence: JP)
  Receive Date: 20210215
  Receipt Date: 20210316
  Transmission Date: 20210420
  Serious: Yes (Other)
  Sender: FDA-Public Use
  Company Number: JP-TEVA-202102_00011183

PATIENT
  Age: 47 Year
  Sex: Female

DRUGS (20)
  1. AMLODIPINE OD TABLET 2.5MG ^TYK^ [Suspect]
     Active Substance: AMLODIPINE BESYLATE
     Indication: HYPERTENSION
     Dosage: 2.5 MILLIGRAM DAILY;
     Route: 048
     Dates: start: 20110722
  2. INTUNIV [Suspect]
     Active Substance: GUANFACINE HYDROCHLORIDE
     Dosage: 3 MILLIGRAM DAILY;
     Route: 048
  3. INTUNIV [Suspect]
     Active Substance: GUANFACINE HYDROCHLORIDE
     Dosage: 3 MILLIGRAM DAILY;
     Route: 048
  4. ABILIFY [Concomitant]
     Active Substance: ARIPIPRAZOLE
     Indication: BIPOLAR II DISORDER
     Dosage: 6 MILLIGRAM DAILY;
     Route: 048
     Dates: start: 20191107
  5. RISPERIDONE. [Concomitant]
     Active Substance: RISPERIDONE
     Indication: ANXIETY
     Dosage: 3 MILLIGRAM DAILY;
     Route: 048
     Dates: start: 20150306
  6. MAGNESIUM OXIDE. [Concomitant]
     Active Substance: MAGNESIUM OXIDE
     Indication: CONSTIPATION
     Dosage: 2.01 GRAM DAILY;
     Route: 048
     Dates: start: 20190129
  7. INTUNIV [Suspect]
     Active Substance: GUANFACINE HYDROCHLORIDE
     Dosage: 3 MILLIGRAM DAILY;
     Route: 048
     Dates: start: 20200204
  8. KEISHIKASHAKUYAKUTO [Concomitant]
     Indication: ABDOMINAL DISTENSION
     Dosage: 7.5 GRAM DAILY;
     Route: 048
     Dates: start: 20160112
  9. OLOPATADINE HYDROCHLORIDE OD [Concomitant]
     Indication: SEASONAL ALLERGY
     Dosage: 10 MILLIGRAM DAILY;
     Route: 048
     Dates: start: 20200226
  10. INTUNIV [Suspect]
     Active Substance: GUANFACINE HYDROCHLORIDE
     Dosage: 3 MILLIGRAM DAILY;
     Route: 048
     Dates: start: 20200316
  11. SHIMOTSUTO [Concomitant]
     Indication: FEELING COLD
     Dosage: 6 GRAM DAILY;
     Route: 048
     Dates: start: 20160112
  12. BLOPRESS TABLETS 8 [Suspect]
     Active Substance: CANDESARTAN CILEXETIL
     Indication: HYPERTENSION
     Dosage: 4 MILLIGRAM DAILY;
     Route: 048
     Dates: start: 20110722
  13. INTUNIV [Suspect]
     Active Substance: GUANFACINE HYDROCHLORIDE
     Dosage: 5 MILLIGRAM DAILY;
     Route: 048
     Dates: start: 20200226
  14. ROZEREM [Concomitant]
     Active Substance: RAMELTEON
     Indication: INSOMNIA
     Dosage: 8 MILLIGRAM DAILY;
     Route: 048
     Dates: start: 20170724
  15. INTUNIV [Suspect]
     Active Substance: GUANFACINE HYDROCHLORIDE
     Dosage: 2 MILLIGRAM DAILY;
     Route: 048
     Dates: start: 20200121
  16. INTUNIV [Suspect]
     Active Substance: GUANFACINE HYDROCHLORIDE
     Dosage: 4 MILLIGRAM DAILY;
     Route: 048
     Dates: start: 20200210
  17. INTUNIV [Suspect]
     Active Substance: GUANFACINE HYDROCHLORIDE
     Dosage: 4 MILLIGRAM DAILY;
     Route: 048
  18. LAMICTAL [Concomitant]
     Active Substance: LAMOTRIGINE
     Indication: BIPOLAR II DISORDER
     Dosage: 300 MILLIGRAM DAILY;
     Route: 048
     Dates: start: 20120611
  19. BELSOMRA [Concomitant]
     Active Substance: SUVOREXANT
     Indication: INSOMNIA
     Dosage: 20 MILLIGRAM DAILY;
     Route: 048
     Dates: start: 20170307
  20. INTUNIV [Suspect]
     Active Substance: GUANFACINE HYDROCHLORIDE
     Indication: ATTENTION DEFICIT HYPERACTIVITY DISORDER
     Dosage: 1 MILLIGRAM DAILY;
     Route: 048
     Dates: start: 20200108

REACTIONS (8)
  - Dyspnoea [Recovering/Resolving]
  - Restlessness [Unknown]
  - Blood pressure decreased [Recovering/Resolving]
  - Dizziness [Unknown]
  - Insomnia [Not Recovered/Not Resolved]
  - Gait inability [Unknown]
  - COVID-19 [Unknown]
  - Cardiovascular symptom [Unknown]

NARRATIVE: CASE EVENT DATE: 20200109
